FAERS Safety Report 7823622-4 (Version None)
Quarter: 2011Q4

REPORT INFORMATION
  Report Type: 
  Country: None (occurrence: None)
  Receive Date: 20111019
  Receipt Date: 20111015
  Transmission Date: 20120403
  Serious: Yes (Other)
  Sender: FDA-Public Use
  Company Number: US-PFIZER INC-2011247022

PATIENT
  Age: 7 Year
  Sex: Male

DRUGS (2)
  1. TYLENOL-500 [Concomitant]
     Dosage: 320 MG, EVERY 6 HOURS
     Route: 048
  2. JUNIOR STRENGTH ADVIL [Suspect]
     Indication: PYREXIA
     Dosage: UNK, 2X/DAY
     Route: 048
     Dates: start: 20111013

REACTIONS (2)
  - THROMBOSIS [None]
  - VOMITING [None]
